FAERS Safety Report 4739017-6 (Version None)
Quarter: 2005Q3

REPORT INFORMATION
  Report Type: 
  Country: None (occurrence: None)
  Receive Date: 20050801
  Receipt Date: 20050607
  Transmission Date: 20060218
  Serious: Yes (Other)
  Sender: FDA-Public Use
  Company Number: 210389

PATIENT
  Age: 37 Year
  Sex: Male

DRUGS (1)
  1. RITUXAN [Suspect]
     Indication: LYMPHOMA
     Dosage: UNK, UNK, INTRAVENOUS
     Route: 042
     Dates: start: 20040801, end: 20040801

REACTIONS (1)
  - HYPOTENSION [None]
